FAERS Safety Report 6848309-6 (Version None)
Quarter: 2010Q3

REPORT INFORMATION
  Report Type: 
  Country: None (occurrence: None)
  Receive Date: 20100716
  Receipt Date: 20100701
  Transmission Date: 20110219
  Serious: Yes (Other)
  Sender: FDA-Public Use
  Company Number: EG-ROCHE-714385

PATIENT
  Sex: Female
  Weight: 120 kg

DRUGS (8)
  1. TOCILIZUMAB [Suspect]
     Indication: RHEUMATOID ARTHRITIS
     Dosage: FORM: VIALS, LAST DOSE PRIOR TO SAE: 17 JUNE 2010
     Route: 042
     Dates: start: 20100321
  2. METHOTREXATE [Suspect]
     Indication: RHEUMATOID ARTHRITIS
     Dosage: LAST DOSE PRIOR TO SAE: 17 JUNE 2010
     Route: 030
     Dates: start: 20000501
  3. PANTOPRAZOLE [Concomitant]
     Dates: start: 20000501
  4. ORPHENADRINE CITRATE [Concomitant]
     Dates: start: 20100131
  5. TORSEMIDE [Concomitant]
     Dates: start: 20100303
  6. ATORVASTATIN [Concomitant]
     Dates: start: 20100419
  7. SPIRONOLACTONE [Concomitant]
     Dates: start: 20100517
  8. ALLOPURINOL [Concomitant]
     Dates: start: 20100517

REACTIONS (1)
  - C-REACTIVE PROTEIN INCREASED [None]
